FAERS Safety Report 7100074-3 (Version None)
Quarter: 2010Q4

REPORT INFORMATION
  Report Type: 
  Country: None (occurrence: None)
  Receive Date: 20101112
  Receipt Date: 20090923
  Transmission Date: 20110411
  Serious: No
  Sender: FDA-Public Use
  Company Number: A0808689A

PATIENT
  Age: 67 Year
  Sex: Female

DRUGS (10)
  1. CARVEDILOL [Suspect]
     Indication: CARDIOMYOPATHY
     Dosage: 5MG PER DAY
     Route: 048
     Dates: start: 20080901, end: 20081201
  2. COREG CR [Suspect]
     Indication: CARDIOMYOPATHY
     Dosage: 80MG PER DAY
     Route: 048
     Dates: start: 20081201
  3. SPIRONOLACTONE [Concomitant]
  4. EFFEXOR XR [Concomitant]
  5. FUROSEMIDE [Concomitant]
  6. LORAZEPAM [Concomitant]
  7. VITAMIN D [Concomitant]
  8. CO Q 10 [Concomitant]
  9. FISH OIL [Concomitant]
  10. SINGULAIR [Concomitant]

REACTIONS (12)
  - ASTHENIA [None]
  - CRYING [None]
  - DEPRESSION [None]
  - FEAR [None]
  - FEELING ABNORMAL [None]
  - LETHARGY [None]
  - MOBILITY DECREASED [None]
  - NERVOUSNESS [None]
  - PALPITATIONS [None]
  - STRESS [None]
  - WEIGHT INCREASED [None]
  - WEIGHT LOSS POOR [None]
